FAERS Safety Report 5535952-X (Version None)
Quarter: 2007Q4

REPORT INFORMATION
  Report Type: 
  Country: None (occurrence: None)
  Receive Date: 20071120
  Receipt Date: 20070807
  Transmission Date: 20080405
  Serious: No
  Sender: FDA-Public Use
  Company Number: WAES 0708USA01393

PATIENT
  Age: 62 Year
  Sex: Female
  Weight: 101.6057 kg

DRUGS (1)
  1. JANUVIA [Suspect]
     Dosage: PO
     Route: 048

REACTIONS (2)
  - FEELING ABNORMAL [None]
  - MOVEMENT DISORDER [None]
